FAERS Safety Report 9801304 (Version 1)
Quarter: 2014Q1

REPORT INFORMATION
  Report Type: Spontaneous
  Country: US (occurrence: US)
  Receive Date: 20140107
  Receipt Date: 20140107
  Transmission Date: 20141002
  Serious: No
  Sender: FDA-Public Use
  Company Number: US-GLAXOSMITHKLINE-A1044740A

PATIENT
  Age: 32 Year
  Sex: Female
  Weight: 65 kg

DRUGS (5)
  1. BENLYSTA [Suspect]
     Indication: SYSTEMIC LUPUS ERYTHEMATOSUS
     Route: 042
     Dates: start: 201208
  2. PLAQUENIL [Concomitant]
  3. VASOTEC [Concomitant]
  4. PAMELOR [Concomitant]
  5. TYLENOL [Concomitant]

REACTIONS (2)
  - Depression [Recovering/Resolving]
  - Headache [Not Recovered/Not Resolved]
